FAERS Safety Report 7021854-9 (Version None)
Quarter: 2010Q3

REPORT INFORMATION
  Report Type: 
  Country: None (occurrence: None)
  Receive Date: 20100930
  Receipt Date: 20100922
  Transmission Date: 20110219
  Serious: Yes (Other)
  Sender: FDA-Public Use
  Company Number: US-RB-014060-10

PATIENT
  Age: 13 Year
  Sex: Male
  Weight: 42.75 kg

DRUGS (1)
  1. DELSYM [Suspect]
     Dosage: PATIENT DRANK THE ENTIRE BOTTLE
     Route: 048
     Dates: start: 20100922

REACTIONS (3)
  - DRUG ABUSE [None]
  - EUPHORIC MOOD [None]
  - VISUAL IMPAIRMENT [None]
